FAERS Safety Report 20490997 (Version 1)
Quarter: 2022Q1

REPORT INFORMATION
  Report Type: Report from Study
  Country: US (occurrence: US)
  Receive Date: 20220218
  Receipt Date: 20220218
  Transmission Date: 20220423
  Serious: Yes (Death)
  Sender: FDA-Public Use
  Company Number: US-MYLANLABS-2022M1013456

PATIENT
  Sex: Male

DRUGS (2)
  1. CLOZAPINE [Suspect]
     Active Substance: CLOZAPINE
     Indication: Product used for unknown indication
     Dosage: 2 DOSAGE FORM, PM (2 TABLETS BY MOUTH AT BEDTIME)
     Route: 048
  2. CLOZAPINE [Suspect]
     Active Substance: CLOZAPINE
     Indication: Product used for unknown indication
     Dosage: 2 DOSAGE FORM, PM(25 MG TABLET TAKEN 2 AT BEDTIME)
     Route: 048

REACTIONS (2)
  - Overdose [Fatal]
  - Treatment noncompliance [Unknown]
